FAERS Safety Report 23435887 (Version 1)
Quarter: 2024Q1

REPORT INFORMATION
  Report Type: Spontaneous
  Country: ES (occurrence: ES)
  Receive Date: 20240124
  Receipt Date: 20240124
  Transmission Date: 20240410
  Serious: Yes (Other)
  Sender: FDA-Public Use
  Company Number: ES-SA-SAC20240122001314

PATIENT
  Sex: Male

DRUGS (2)
  1. DUPIXENT [Suspect]
     Active Substance: DUPILUMAB
     Indication: Asthma
     Dosage: UNK
     Route: 065
  2. OMALIZUMAB [Concomitant]
     Active Substance: OMALIZUMAB
     Dosage: 2 DF

REACTIONS (2)
  - Eosinophilic granulomatosis with polyangiitis [Unknown]
  - Eosinophil count increased [Unknown]
